FAERS Safety Report 6039228-6 (Version None)
Quarter: 2009Q1

REPORT INFORMATION
  Report Type: 
  Country: None (occurrence: None)
  Receive Date: 20090115
  Receipt Date: 20090109
  Transmission Date: 20090719
  Serious: Yes (Hospitalization)
  Sender: FDA-Public Use
  Company Number: US-GENENTECH-275339

PATIENT
  Sex: Female
  Weight: 68.027 kg

DRUGS (4)
  1. HERCEPTIN [Suspect]
     Indication: BREAST CANCER METASTATIC
     Dosage: 8 MG/KG, SINGLE
     Route: 042
     Dates: start: 20081101, end: 20081101
  2. HERCEPTIN [Suspect]
     Dosage: 6 MG/KG, Q3W
     Route: 042
     Dates: end: 20081218
  3. CELEBREX [Suspect]
     Indication: DRUG USE FOR UNKNOWN INDICATION
     Dosage: UNK
  4. HORMONE THERAPY NOS [Concomitant]
     Indication: DRUG USE FOR UNKNOWN INDICATION
     Dosage: UNK

REACTIONS (2)
  - HAEMOLYSIS [None]
  - LIVER DISORDER [None]
